FAERS Safety Report 14919507 (Version 1)
Quarter: 2018Q2

REPORT INFORMATION
  Report Type: Spontaneous
  Country: FR (occurrence: FR)
  Receive Date: 20180521
  Receipt Date: 20180521
  Transmission Date: 20180711
  Serious: Yes (Hospitalization)
  Sender: FDA-Public Use
  Company Number: FR-PFIZER INC-2018203968

PATIENT
  Age: 55 Year
  Sex: Female
  Weight: 49 kg

DRUGS (1)
  1. OXALIPLATIN. [Suspect]
     Active Substance: OXALIPLATIN
     Indication: ADENOCARCINOMA GASTRIC
     Dosage: 100 MG, UNK
     Route: 042
     Dates: start: 20180327, end: 20180327

REACTIONS (4)
  - Throat tightness [Recovering/Resolving]
  - Erythema [Recovering/Resolving]
  - Headache [Recovering/Resolving]
  - Pruritus [Recovering/Resolving]

NARRATIVE: CASE EVENT DATE: 20180327
